FAERS Safety Report 4324967-5 (Version None)
Quarter: 2004Q1

REPORT INFORMATION
  Report Type: 
  Country: None (occurrence: None)
  Receive Date: 20040324
  Receipt Date: 20040309
  Transmission Date: 20041129
  Serious: Yes (Other)
  Sender: FDA-Public Use
  Company Number: 2004-113002-NL

PATIENT
  Age: 21 Year
  Sex: Female
  Weight: 45.5 kg

DRUGS (2)
  1. NUVARING [Suspect]
     Indication: CONTRACEPTION
     Dosage: NI VAGINAL
     Dates: start: 20040101, end: 20040211
  2. FIORICET [Concomitant]

REACTIONS (10)
  - BLOOD URINE [None]
  - EPISTAXIS [None]
  - FEELING ABNORMAL [None]
  - HAEMOPTYSIS [None]
  - MEDICAL DEVICE COMPLICATION [None]
  - MENORRHAGIA [None]
  - MUSCLE CRAMP [None]
  - PRODUCTIVE COUGH [None]
  - TENSION HEADACHE [None]
  - VAGINAL HAEMORRHAGE [None]
